FAERS Safety Report 9602475 (Version 4)
Quarter: 2013Q4

REPORT INFORMATION
  Report Type: Report from Study
  Country: CA (occurrence: CA)
  Receive Date: 20131007
  Receipt Date: 20131118
  Transmission Date: 20140711
  Serious: Yes (Death, Hospitalization, Other)
  Sender: FDA-Public Use
  Company Number: PHHY2013CA111430

PATIENT
  Age: 86 Year
  Sex: Female

DRUGS (8)
  1. SANDOSTATIN LAR [Suspect]
     Indication: NEUROENDOCRINE TUMOUR
     Dosage: 30 MG, EVERY 4 WEEKS
     Route: 030
     Dates: start: 20130806, end: 20131010
  2. SANDOSTATIN LAR [Suspect]
     Indication: CARCINOID SYNDROME
  3. WARFARIN [Suspect]
     Dosage: 2 TO 4 MG DAILY
  4. WARFARIN [Suspect]
     Dosage: 0.5 MG, DAILY
  5. VALSARTAN [Concomitant]
     Dosage: UNK UKN, UNK
  6. TECTA [Concomitant]
     Dosage: UNK UKN, UNK
  7. FUROSEMIDE [Concomitant]
     Dosage: UNK UKN, UNK
  8. BISOPROLOL [Concomitant]
     Dosage: UNK UKN, UNK

REACTIONS (8)
  - Death [Fatal]
  - Cerebrovascular accident [Recovered/Resolved]
  - Vertigo [Unknown]
  - Transient ischaemic attack [Unknown]
  - International normalised ratio increased [Unknown]
  - Thrombosis [Unknown]
  - Rib fracture [Unknown]
  - Pain [Unknown]
